FAERS Safety Report 8221053-9 (Version None)
Quarter: 2012Q1

REPORT INFORMATION
  Report Type: 
  Country: None (occurrence: None)
  Receive Date: 20120320
  Receipt Date: 20120307
  Transmission Date: 20120608
  Serious: Yes (Hospitalization, Other)
  Sender: FDA-Public Use
  Company Number: DE-ELI_LILLY_AND_COMPANY-DE201203001753

PATIENT
  Sex: Female

DRUGS (4)
  1. ANALGESICS [Concomitant]
  2. VITAMIN D [Concomitant]
  3. FORTEO [Suspect]
     Indication: OSTEOPOROSIS
     Dosage: UNK, QD
     Route: 058
     Dates: start: 20101208
  4. CALCIUM CARBONATE [Concomitant]

REACTIONS (6)
  - GAIT DISTURBANCE [None]
  - DEMENTIA [None]
  - OLIGODIPSIA [None]
  - MENTAL IMPAIRMENT [None]
  - BLOOD DISORDER [None]
  - CONDITION AGGRAVATED [None]
